FAERS Safety Report 6490529-7 (Version None)
Quarter: 2009Q4

REPORT INFORMATION
  Report Type: 
  Country: None (occurrence: None)
  Receive Date: 20091208
  Receipt Date: 20091124
  Transmission Date: 20100525
  Serious: Yes (Hospitalization, Other)
  Sender: FDA-Public Use
  Company Number: 09US005322

PATIENT
  Age: 62 Year
  Sex: Male
  Weight: 83 kg

DRUGS (3)
  1. DIBROMM PE GRP ELIXIR 906(PHENYLEPHRINE HYDROCHLORIDE 0.5 MG/ML, BROMP [Suspect]
     Indication: SEASONAL ALLERGY
     Dosage: 20 ML, QD, ORAL
     Route: 048
     Dates: start: 20091110, end: 20091116
  2. ASPIRIN [Concomitant]
  3. SIMVASTATIN [Concomitant]

REACTIONS (3)
  - BLOOD PRESSURE INCREASED [None]
  - GASTROOESOPHAGEAL REFLUX DISEASE [None]
  - MUSCULOSKELETAL PAIN [None]
